FAERS Safety Report 26020252 (Version 1)
Quarter: 2025Q4

REPORT INFORMATION
  Report Type: Spontaneous
  Country: US (occurrence: None)
  Receive Date: 20251108
  Receipt Date: 20251108
  Transmission Date: 20260117
  Serious: Yes (Life-Threatening, Hospitalization)
  Sender: FDA-CTU
  Company Number: None

PATIENT
  Age: 35 Year
  Sex: Female
  Weight: 60.75 kg

DRUGS (1)
  1. KEYTRUDA [Suspect]
     Active Substance: PEMBROLIZUMAB
     Indication: Cervix carcinoma stage III
     Dates: start: 20250602, end: 20250916

REACTIONS (6)
  - Immune-mediated enterocolitis [None]
  - Loss of consciousness [None]
  - Chromaturia [None]
  - Sepsis [None]
  - Anaemia [None]
  - Immunotoxicity [None]

NARRATIVE: CASE EVENT DATE: 20250927
